FAERS Safety Report 14565596 (Version 1)
Quarter: 2018Q1

REPORT INFORMATION
  Report Type: Spontaneous
  Country: US (occurrence: US)
  Receive Date: 20180223
  Receipt Date: 20180223
  Transmission Date: 20180509
  Serious: No
  Sender: FDA-Public Use
  Company Number: US-TEVA-2018-US-853318

PATIENT
  Age: 72 Year
  Sex: Female

DRUGS (1)
  1. ENALAPRIL MALEATE. [Suspect]
     Active Substance: ENALAPRIL MALEATE
     Indication: HYPERTENSION

REACTIONS (3)
  - Hypertension [Unknown]
  - Drug effect decreased [Unknown]
  - Wrong technique in product usage process [Unknown]
